FAERS Safety Report 16183097 (Version 2)
Quarter: 2019Q3

REPORT INFORMATION
  Report Type: Report from Study
  Country: None (occurrence: US)
  Receive Date: 20190411
  Receipt Date: 20190704
  Transmission Date: 20191004
  Serious: Yes (Hospitalization)
  Sender: FDA-Public Use
  Company Number: US-INSMED, INC.-US-INS-19-00869

PATIENT
  Sex: Female
  Weight: 77 kg

DRUGS (3)
  1. ARIKAYCE [Suspect]
     Active Substance: AMIKACIN
     Indication: BRONCHITIS CHRONIC
     Route: 055
     Dates: start: 20190118, end: 201903
  2. LAMIRA NEBULIZER SYSTEM [Suspect]
     Active Substance: DEVICE
  3. ALBUTEROL INHALER [Concomitant]
     Active Substance: ALBUTEROL
     Indication: PRODUCT USED FOR UNKNOWN INDICATION

REACTIONS (4)
  - Heart rate increased [Not Recovered/Not Resolved]
  - Off label use [Unknown]
  - Cough [Not Recovered/Not Resolved]
  - Anaemia [Not Recovered/Not Resolved]

NARRATIVE: CASE EVENT DATE: 2019
